FAERS Safety Report 16857392 (Version 1)
Quarter: 2019Q3

REPORT INFORMATION
  Report Type: Report from Study
  Country: BR (occurrence: BR)
  Receive Date: 20190926
  Receipt Date: 20190926
  Transmission Date: 20191005
  Serious: Yes (Other)
  Sender: FDA-Public Use
  Company Number: PHHY2019BR222333

PATIENT
  Sex: Male

DRUGS (2)
  1. ENTRESTO [Suspect]
     Active Substance: SACUBITRIL\VALSARTAN
     Indication: PRODUCT USED FOR UNKNOWN INDICATION
     Dosage: 50 MG (24 MG SACUBITRIL/26 MG VALSARTAN), UNK
     Route: 065
  2. ENTRESTO [Suspect]
     Active Substance: SACUBITRIL\VALSARTAN
     Dosage: 100 MG (49 MG SACUBITRIL/51 MG VALSARTAN), UNK
     Route: 065

REACTIONS (9)
  - Fall [Unknown]
  - Dysuria [Unknown]
  - Dizziness [Unknown]
  - Prostate infection [Unknown]
  - Ejection fraction decreased [Unknown]
  - Pollakiuria [Unknown]
  - Heart rate increased [Unknown]
  - Cardiac disorder [Unknown]
  - Prostatomegaly [Unknown]
